FAERS Safety Report 5675198-8 (Version None)
Quarter: 2008Q2

REPORT INFORMATION
  Report Type: 
  Country: None (occurrence: None)
  Receive Date: 20080303
  Receipt Date: 20071219
  Transmission Date: 20081010
  Serious: Yes (Hospitalization, Other)
  Sender: FDA-Public Use
  Company Number: RB-8815-2007

PATIENT
  Age: 44 Year
  Sex: Male

DRUGS (5)
  1. SUBOXONE [Suspect]
     Indication: DRUG DEPENDENCE
     Dosage: 12 MG SUBLINGUAL
     Dates: start: 20060101
  2. SUBUTEX [Suspect]
     Indication: DRUG DEPENDENCE
     Dosage: 12 MG SUBLINGUAL
     Route: 060
     Dates: start: 20071001, end: 20071001
  3. SUBUTEX [Suspect]
     Indication: DRUG DEPENDENCE
     Dosage: 12 MG SUBLINGUAL
     Route: 060
     Dates: start: 20071210
  4. PANCREATIC ENZYMES [Concomitant]
  5. ACETAMINOPHEN [Concomitant]

REACTIONS (3)
  - AGEUSIA [None]
  - PAIN [None]
  - SUICIDAL IDEATION [None]
